FAERS Safety Report 5475084-2 (Version None)
Quarter: 2007Q4

REPORT INFORMATION
  Report Type: 
  Country: None (occurrence: None)
  Receive Date: 20071002
  Receipt Date: 20070919
  Transmission Date: 20080405
  Serious: No
  Sender: FDA-Public Use
  Company Number: US-BOEHRINGER INGELHEIM PHARMACEUTICALS, INC.-2007-BP-21437BP

PATIENT
  Sex: Male

DRUGS (3)
  1. FLOMAX [Suspect]
     Indication: BENIGN PROSTATIC HYPERPLASIA
     Route: 048
     Dates: start: 20070601
  2. PLAVIX [Concomitant]
     Indication: CORONARY ARTERY BYPASS
  3. ASPIRIN [Concomitant]
     Indication: CORONARY ARTERY BYPASS

REACTIONS (1)
  - DRUG INEFFECTIVE [None]
